FAERS Safety Report 9334662 (Version 1)
Quarter: 2013Q2

REPORT INFORMATION
  Report Type: Spontaneous
  Country: US (occurrence: US)
  Receive Date: 20130606
  Receipt Date: 20130606
  Transmission Date: 20140414
  Serious: No
  Sender: FDA-Public Use
  Company Number: US-AMGEN-USASP2013021608

PATIENT
  Sex: Male

DRUGS (4)
  1. PROLIA [Suspect]
     Indication: OSTEOPOROSIS
     Dosage: UNK
     Dates: start: 20111129
  2. CALCIUM [Concomitant]
  3. MULTIVITAMIN                       /00097801/ [Concomitant]
  4. BABY ASPIRIN [Concomitant]

REACTIONS (3)
  - Dry skin [Unknown]
  - Pruritus [Unknown]
  - Erythema [Unknown]
